FAERS Safety Report 10919329 (Version 2)
Quarter: 2015Q2

REPORT INFORMATION
  Report Type: Report from Study
  Country: US (occurrence: US)
  Receive Date: 20150316
  Receipt Date: 20150410
  Transmission Date: 20150821
  Serious: Yes (Hospitalization)
  Sender: FDA-Public Use
  Company Number: US-ACTELION-A-NJ2015-114461

PATIENT
  Age: 84 Year
  Sex: Female

DRUGS (2)
  1. MACITENTAN [Suspect]
     Active Substance: MACITENTAN
     Indication: PULMONARY ARTERIAL HYPERTENSION
     Dosage: 10 MG, QD
     Route: 048
     Dates: start: 20140220
  2. ADCIRCA [Concomitant]
     Active Substance: TADALAFIL

REACTIONS (12)
  - Myalgia [Unknown]
  - Flatulence [Unknown]
  - Musculoskeletal pain [Unknown]
  - Lactose intolerance [Unknown]
  - Malaise [Unknown]
  - Pain [Unknown]
  - Hypotension [Unknown]
  - Decreased activity [Unknown]
  - Back pain [Unknown]
  - Coeliac disease [Unknown]
  - Asthenia [Unknown]
  - Dyspepsia [Unknown]
